FAERS Safety Report 9209445 (Version 1)
Quarter: 2013Q2

REPORT INFORMATION
  Report Type: Report from Study
  Country: US (occurrence: US)
  Receive Date: 20130404
  Receipt Date: 20130404
  Transmission Date: 20140414
  Serious: Yes (Hospitalization)
  Sender: FDA-Public Use
  Company Number: US-PFIZER INC-2013105663

PATIENT
  Age: 27 Year
  Sex: Female

DRUGS (4)
  1. MS CONTIN [Suspect]
     Dosage: 60 MG, 2X/DAY
     Route: 048
  2. AMITRIPTYLINE [Concomitant]
     Dosage: UNK
  3. NEURONTIN [Concomitant]
     Dosage: UNK
  4. CYMBALTA [Concomitant]
     Dosage: UNK

REACTIONS (2)
  - Headache [Unknown]
  - Hypersomnia [Unknown]
